FAERS Safety Report 18357024 (Version 3)
Quarter: 2021Q1

REPORT INFORMATION
  Report Type: Report from Study
  Country: DE (occurrence: DE)
  Receive Date: 20201007
  Receipt Date: 20210129
  Transmission Date: 20210419
  Serious: Yes (Death, Life-Threatening, Hospitalization)
  Sender: FDA-Public Use
  Company Number: NVSC2020DE240728

PATIENT
  Age: 65 Year
  Sex: Male
  Weight: 72 kg

DRUGS (2)
  1. COSENTYX [Suspect]
     Active Substance: SECUKINUMAB
     Indication: PSORIASIS
     Dosage: 300 MG, QMO
     Route: 058
     Dates: start: 20170222, end: 20200625
  2. COSENTYX [Suspect]
     Active Substance: SECUKINUMAB
     Dosage: 300 MG, QMO
     Route: 058
     Dates: start: 20200722

REACTIONS (4)
  - Oesophageal fistula [Recovered/Resolved]
  - Aortic dissection [Recovered/Resolved]
  - Multiple organ dysfunction syndrome [Fatal]
  - Septic shock [Fatal]

NARRATIVE: CASE EVENT DATE: 20200722
